FAERS Safety Report 7093471-6 (Version None)
Quarter: 2010Q4

REPORT INFORMATION
  Report Type: 
  Country: None (occurrence: None)
  Receive Date: 20101029
  Receipt Date: 20101019
  Transmission Date: 20110411
  Serious: Yes (Disabling)
  Sender: FDA-Public Use
  Company Number: OSCN-NO-0909S-0422

PATIENT
  Age: 64 Year
  Sex: Male
  Weight: 79 kg

DRUGS (22)
  1. OMNISCAN [Suspect]
     Indication: PRODUCT USED FOR UNKNOWN INDICATION
     Dosage: 10 ML, SINGLE DOSE, I.V.
     Route: 042
     Dates: start: 20010607, end: 20010607
  2. GADOVIST [Suspect]
     Indication: PRODUCT USED FOR UNKNOWN INDICATION
     Dosage: 15 ML
     Dates: start: 20080221, end: 20080221
  3. ERYTHROPOIETIN (NEORECORMON) [Concomitant]
  4. CALCIUM ACETATE (PHOS-EX) [Concomitant]
  5. SACCHARATED IRON OXIDE (VENOFER) [Concomitant]
  6. CETIRIZINE (ALNOK) [Concomitant]
  7. INSULIN INSULATARD NPH NORDISK [Concomitant]
  8. PARACETAMOL (PINEX) [Concomitant]
  9. PLAVIX [Concomitant]
  10. CITALOPRAM (AKARIN) [Concomitant]
  11. FUROSEMIDE [Concomitant]
  12. PANTOPRAZOLE SODIUM [Concomitant]
  13. SIMVASTATIN [Concomitant]
  14. ZOPICLONE (IMOCLONE) [Concomitant]
  15. GLYCERYL TRINITRATE [Concomitant]
  16. ISOSORBIDE MONONITRATE (ISODUR) [Concomitant]
  17. ACETYLSALICYLIC ACID (MAGNYL) [Concomitant]
  18. MIRTAZAPINE [Concomitant]
  19. VITAMIN B-COMPLEX, PLAIN [Concomitant]
  20. INSULIN HUMAN (ACTRAPID PEN) [Concomitant]
  21. NULYTEY (MOVICOL) [Concomitant]
  22. NITROGLYCERIN [Concomitant]

REACTIONS (29)
  - ABDOMINAL PAIN UPPER [None]
  - ACTIVITIES OF DAILY LIVING IMPAIRED [None]
  - ARTHRALGIA [None]
  - BLISTER [None]
  - BLOOD CREATININE INCREASED [None]
  - BLOOD PHOSPHORUS INCREASED [None]
  - BLOOD PRESSURE INCREASED [None]
  - C-REACTIVE PROTEIN INCREASED [None]
  - CEREBROVASCULAR ACCIDENT [None]
  - CLOSTRIDIUM TEST POSITIVE [None]
  - DRUG INTERACTION [None]
  - FINGER AMPUTATION [None]
  - FOOT FRACTURE [None]
  - GAIT DISTURBANCE [None]
  - HYPOKINESIA [None]
  - LEG AMPUTATION [None]
  - NEPHROGENIC SYSTEMIC FIBROSIS [None]
  - PAIN IN EXTREMITY [None]
  - PERITONEAL DIALYSIS [None]
  - PERITONITIS [None]
  - PULMONARY OEDEMA [None]
  - PYREXIA [None]
  - RENAL FAILURE CHRONIC [None]
  - SENSORY DISTURBANCE [None]
  - SEPTIC SHOCK [None]
  - SKIN HYPERTROPHY [None]
  - TENDON RUPTURE [None]
  - TOE AMPUTATION [None]
  - WOUND [None]
